FAERS Safety Report 17865051 (Version 1)
Quarter: 2020Q2

REPORT INFORMATION
  Report Type: Spontaneous
  Country: GB (occurrence: GB)
  Receive Date: 20200605
  Receipt Date: 20200605
  Transmission Date: 20200714
  Serious: Yes (Other)
  Sender: FDA-Public Use
  Company Number: GB-ACCORD-182704

PATIENT
  Age: 74 Year
  Sex: Male

DRUGS (2)
  1. AMITRIPTYLINE ACCORD [Suspect]
     Active Substance: AMITRIPTYLINE
     Indication: PRODUCT USED FOR UNKNOWN INDICATION
     Dates: start: 20200505
  2. ZOPICLONE TEVA [Concomitant]
     Indication: INSOMNIA
     Dosage: STOPPED TAKING TWICE IN THE LAST 34 DAYS FOR TWO DAYS AT A TIME

REACTIONS (2)
  - Suicidal ideation [Unknown]
  - Dyspnoea [Recovered/Resolved]
